FAERS Safety Report 16397296 (Version 1)
Quarter: 2019Q2

REPORT INFORMATION
  Report Type: Spontaneous
  Country: US (occurrence: US)
  Receive Date: 20190606
  Receipt Date: 20190606
  Transmission Date: 20190711
  Serious: Yes (Other)
  Sender: FDA-Public Use
  Company Number: US-HETERO CORPORATE-HET2019US00785

PATIENT
  Age: 33 Year
  Sex: Female

DRUGS (2)
  1. CLOZAPINE. [Suspect]
     Active Substance: CLOZAPINE
     Indication: SCHIZOAFFECTIVE DISORDER
     Dosage: 25 MG AT BEDTIME
     Route: 048
  2. LITHIUM. [Suspect]
     Active Substance: LITHIUM
     Indication: SCHIZOAFFECTIVE DISORDER
     Dosage: 600 MG, BID
     Route: 048

REACTIONS (2)
  - Toxicity to various agents [Recovering/Resolving]
  - Acute kidney injury [Unknown]
